FAERS Safety Report 14099261 (Version 2)
Quarter: 2019Q2

REPORT INFORMATION
  Report Type: Spontaneous
  Country: US (occurrence: US)
  Receive Date: 20171017
  Receipt Date: 20190419
  Transmission Date: 20190711
  Serious: Yes (Hospitalization)
  Sender: FDA-Public Use
  Company Number: US-VYERA PHARMACEUTICALS, LLC-2017VYE00047

PATIENT
  Age: 61 Year
  Sex: Male
  Weight: 45.81 kg

DRUGS (9)
  1. DARAPRIM [Suspect]
     Active Substance: PYRIMETHAMINE
     Indication: TOXOPLASMOSIS
     Dosage: 25 MG, 1X/DAY
     Route: 048
     Dates: start: 20160601
  2. DARAPRIM [Suspect]
     Active Substance: PYRIMETHAMINE
     Indication: CEREBRAL TOXOPLASMOSIS
     Dosage: 25 MG, 1X/DAY
     Route: 048
     Dates: start: 20160601
  3. ABACAVIR. [Concomitant]
     Active Substance: ABACAVIR
  4. NORVIR [Concomitant]
     Active Substance: RITONAVIR
  5. XANAX [Concomitant]
     Active Substance: ALPRAZOLAM
     Dosage: UNK, AS NEEDED
  6. ATOVAQUONE. [Concomitant]
     Active Substance: ATOVAQUONE
  7. PREZISTA [Concomitant]
     Active Substance: DARUNAVIR ETHANOLATE
  8. METHENAMINE [Concomitant]
     Active Substance: METHENAMINE
  9. LEUCOVORIN. [Concomitant]
     Active Substance: LEUCOVORIN

REACTIONS (6)
  - Vocal cord operation [Unknown]
  - Dysphagia [Recovering/Resolving]
  - Urinary tract infection [Unknown]
  - Gastrointestinal tube insertion [Unknown]
  - Bladder operation [Unknown]
  - Vocal cord disorder [Recovering/Resolving]

NARRATIVE: CASE EVENT DATE: 201805
